FAERS Safety Report 9788631 (Version 1)
Quarter: 2013Q4

REPORT INFORMATION
  Report Type: Spontaneous
  Country: US (occurrence: US)
  Receive Date: 20131230
  Receipt Date: 20131230
  Transmission Date: 20140711
  Serious: Yes (Other)
  Sender: FDA-Public Use
  Company Number: US-TEVA-453464USA

PATIENT
  Age: 83 Year
  Sex: Female

DRUGS (1)
  1. PROPRANOLOL [Suspect]
     Indication: HYPERTENSION
     Dosage: 100MG DAILY
     Route: 065

REACTIONS (2)
  - Telangiectasia [Recovered/Resolved]
  - Capillary disorder [Recovered/Resolved]
